FAERS Safety Report 4797458-5 (Version None)
Quarter: 2005Q4

REPORT INFORMATION
  Report Type: 
  Country: None (occurrence: None)
  Receive Date: 20051006
  Receipt Date: 20051006
  Transmission Date: 20060501
  Serious: Yes (Hospitalization)
  Sender: FDA-Public Use
  Company Number: None

PATIENT
  Sex: Male

DRUGS (8)
  1. ARIPIPRAZOLE [Suspect]
     Indication: BIPOLAR DISORDER
     Dosage: 15MG
     Dates: start: 20040801, end: 20041120
  2. QUETIAPINE FUMARATE [Concomitant]
  3. CARVEDILOL [Concomitant]
  4. GABAPENTIN [Concomitant]
  5. LORAZEPAM [Concomitant]
  6. FUROSEMIDE [Concomitant]
  7. ENALAPRIL [Concomitant]
  8. ROPINIROLE [Concomitant]

REACTIONS (10)
  - AGITATION [None]
  - BLOOD CREATINE PHOSPHOKINASE INCREASED [None]
  - CONFUSIONAL STATE [None]
  - DYSPNOEA [None]
  - HYPOTENSION [None]
  - NEUROLEPTIC MALIGNANT SYNDROME [None]
  - PYREXIA [None]
  - SEPSIS [None]
  - TACHYCARDIA [None]
  - TROPONIN INCREASED [None]
